FAERS Safety Report 6976321-5 (Version None)
Quarter: 2010Q3

REPORT INFORMATION
  Report Type: 
  Country: None (occurrence: None)
  Receive Date: 20100910
  Receipt Date: 20100901
  Transmission Date: 20110219
  Serious: Yes (Other)
  Sender: FDA-Public Use
  Company Number: US-PFIZER INC-2010111136

PATIENT
  Sex: Male

DRUGS (3)
  1. LIPITOR [Suspect]
     Dosage: UNK
  2. PRILOSEC [Interacting]
     Dosage: UNK
  3. FLOMAX [Interacting]
     Dosage: UNK

REACTIONS (3)
  - BACK PAIN [None]
  - DRUG INTERACTION [None]
  - TONGUE CARCINOMA STAGE IV [None]
